FAERS Safety Report 23751317 (Version 2)
Quarter: 2024Q2

REPORT INFORMATION
  Report Type: Spontaneous
  Country: JP (occurrence: JP)
  Receive Date: 20240417
  Receipt Date: 20240523
  Transmission Date: 20240715
  Serious: Yes (Hospitalization)
  Sender: FDA-Public Use
  Company Number: JP-TAKEDA-2023TJP017179

PATIENT
  Age: 8 Decade
  Sex: Male

DRUGS (3)
  1. VECTIBIX [Suspect]
     Active Substance: PANITUMUMAB
     Indication: Colorectal cancer
     Dosage: 6 MILLIGRAM/KILOGRAM, Q2WK (6 MILLIGRAM/KILOGRAM, Q2WEEK)
     Route: 041
  2. VECTIBIX [Suspect]
     Active Substance: PANITUMUMAB
     Dosage: UNK
     Route: 042
  3. OXALIPLATIN [Suspect]
     Active Substance: OXALIPLATIN
     Indication: Product used for unknown indication
     Dosage: UNK
     Route: 065

REACTIONS (4)
  - Illness [Unknown]
  - Stoma site dermatitis [Unknown]
  - Hypoaesthesia [Unknown]
  - Dermatitis acneiform [Not Recovered/Not Resolved]
